FAERS Safety Report 4420693-2 (Version None)
Quarter: 2004Q3

REPORT INFORMATION
  Report Type: 
  Country: None (occurrence: None)
  Receive Date: 20040809
  Receipt Date: 20040427
  Transmission Date: 20050211
  Serious: No
  Sender: FDA-Public Use
  Company Number: US-GLAXOSMITHKLINE-A0508641A

PATIENT
  Age: 33 Year
  Sex: Female

DRUGS (4)
  1. PAXIL [Suspect]
     Indication: STEROID WITHDRAWAL SYNDROME
     Dosage: 30MG PER DAY
     Route: 048
     Dates: start: 20040426
  2. PREDNISONE TAB [Concomitant]
  3. ASACOL [Concomitant]
  4. PURINETHOL [Concomitant]

REACTIONS (2)
  - HEADACHE [None]
  - TREMOR [None]
